FAERS Safety Report 20982162 (Version 2)
Quarter: 2022Q2

REPORT INFORMATION
  Report Type: Spontaneous
  Country: IN (occurrence: IN)
  Receive Date: 20220620
  Receipt Date: 20220628
  Transmission Date: 20220720
  Serious: Yes (Other)
  Sender: FDA-Public Use
  Company Number: IN-MLMSERVICE-20220609-3604934-1

PATIENT
  Age: 56 Year
  Sex: Male

DRUGS (2)
  1. METHYLPREDNISOLONE SODIUM SUCCINATE [Suspect]
     Active Substance: METHYLPREDNISOLONE SODIUM SUCCINATE
     Indication: COVID-19
     Dosage: 500 MG (5 INJECTIONS)
     Route: 042
  2. PREDNISOLONE ACETATE [Suspect]
     Active Substance: PREDNISOLONE ACETATE
     Dosage: UNK
     Route: 061

REACTIONS (6)
  - Keratitis fungal [Unknown]
  - Endophthalmitis [Unknown]
  - Fusarium infection [Unknown]
  - Atrophy of globe [Unknown]
  - Blindness [Unknown]
  - Off label use [Unknown]
